FAERS Safety Report 6566848-2 (Version None)
Quarter: 2010Q1

REPORT INFORMATION
  Report Type: 
  Country: None (occurrence: None)
  Receive Date: 20100202
  Receipt Date: 20100126
  Transmission Date: 20100710
  Serious: Yes (Other)
  Sender: FDA-Public Use
  Company Number: B0607748A

PATIENT
  Sex: Male

DRUGS (11)
  1. SERETIDE [Suspect]
     Indication: ASTHMA
     Dosage: 1PUFF TWICE PER DAY
     Route: 055
     Dates: start: 20081201
  2. ATORVASTATIN [Concomitant]
     Dosage: 20MG AT NIGHT
     Route: 065
  3. NITROLINGUAL [Concomitant]
     Indication: PAIN
     Route: 065
  4. ASPIRIN [Concomitant]
     Indication: THROMBOSIS PROPHYLAXIS
     Dosage: 75MG PER DAY
     Route: 065
  5. QUININE BISULPHATE [Concomitant]
     Dosage: 1TAB AT NIGHT
     Route: 065
  6. LANSOPRAZOLE [Concomitant]
     Indication: GASTROINTESTINAL DISORDER
     Dosage: 30MG PER DAY
     Route: 065
  7. UNKNOWN DRUG [Concomitant]
     Dosage: 60MG PER DAY
     Route: 065
  8. GLICLAZIDE [Concomitant]
     Dosage: 80MG TWICE PER DAY
     Route: 065
  9. ATROVENT [Concomitant]
     Indication: ASTHMA
     Dosage: 2PUFF THREE TIMES PER DAY
     Route: 065
  10. TILDIEM RETARD [Concomitant]
     Indication: BLOOD PRESSURE
     Dosage: 1TAB PER DAY
     Route: 065
  11. VILDAGLIPTIN [Concomitant]
     Dosage: 50MG PER DAY
     Route: 065

REACTIONS (2)
  - BLOOD GLUCOSE INCREASED [None]
  - DIABETES MELLITUS INADEQUATE CONTROL [None]
